FAERS Safety Report 10348040 (Version 5)
Quarter: 2015Q1

REPORT INFORMATION
  Report Type: Report from Study
  Country: CA (occurrence: CA)
  Receive Date: 20140729
  Receipt Date: 20150324
  Transmission Date: 20150720
  Serious: Yes (Death, Hospitalization, Other)
  Sender: FDA-Public Use
  Company Number: PHHY2014CA069989

PATIENT
  Age: 86 Year
  Sex: Female

DRUGS (1)
  1. SANDOSTATIN LAR DEPOT [Suspect]
     Active Substance: OCTREOTIDE ACETATE
     Indication: VIPOMA
     Dosage: 20 MG, QMO
     Route: 030
     Dates: start: 20081011, end: 20150203

REACTIONS (8)
  - Pain [Unknown]
  - Death [Fatal]
  - Pneumonia [Unknown]
  - Fatigue [Unknown]
  - Blood pressure systolic increased [Unknown]
  - Headache [Unknown]
  - Syncope [Unknown]
  - Nausea [Unknown]

NARRATIVE: CASE EVENT DATE: 20140703
